FAERS Safety Report 14056412 (Version 2)
Quarter: 2019Q2

REPORT INFORMATION
  Report Type: Spontaneous
  Country: IT (occurrence: IT)
  Receive Date: 20171006
  Receipt Date: 20190403
  Transmission Date: 20190711
  Serious: Yes (Life-Threatening, Hospitalization)
  Sender: FDA-Public Use
  Company Number: IT-MYLANLABS-2017M1061901

PATIENT
  Age: 68 Year
  Sex: Female

DRUGS (8)
  1. FOTEMUSTINE [Suspect]
     Active Substance: FOTEMUSTINE
     Indication: NON-HODGKIN^S LYMPHOMA
     Route: 065
     Dates: start: 20160922
  2. TAZOBACTAM [Concomitant]
     Active Substance: TAZOBACTAM
     Indication: ANTIBIOTIC THERAPY
     Dosage: UNK
     Route: 065
  3. ACICLOVIR [Concomitant]
     Active Substance: ACYCLOVIR
     Indication: PRODUCT USED FOR UNKNOWN INDICATION
     Dosage: UNK
     Route: 065
  4. MELPHALAN. [Suspect]
     Active Substance: MELPHALAN
     Indication: NON-HODGKIN^S LYMPHOMA
     Route: 065
     Dates: start: 20160922
  5. VANCOMYCIN [Concomitant]
     Active Substance: VANCOMYCIN
     Indication: ANTIBIOTIC THERAPY
     Dosage: UNK
     Route: 065
  6. ETOPOSIDE. [Suspect]
     Active Substance: ETOPOSIDE
     Indication: NON-HODGKIN^S LYMPHOMA
     Route: 065
     Dates: start: 20160922
  7. CYTARABINE. [Suspect]
     Active Substance: CYTARABINE
     Indication: NON-HODGKIN^S LYMPHOMA
     Dosage: UNK
     Route: 065
     Dates: start: 20160922
  8. PIPERACILLIN. [Concomitant]
     Active Substance: PIPERACILLIN SODIUM
     Indication: ANTIBIOTIC THERAPY
     Dosage: UNK
     Route: 065

REACTIONS (1)
  - Stomatitis [Recovered/Resolved]

NARRATIVE: CASE EVENT DATE: 20161028
